FAERS Safety Report 6901743-8 (Version None)
Quarter: 2010Q3

REPORT INFORMATION
  Report Type: 
  Country: None (occurrence: None)
  Receive Date: 20100802
  Receipt Date: 20100802
  Transmission Date: 20110219
  Serious: Yes (Other)
  Sender: FDA-Public Use
  Company Number: None

PATIENT
  Age: 57 Year
  Sex: Female
  Weight: 58.0604 kg

DRUGS (1)
  1. LATISSE [Suspect]
     Indication: GROWTH OF EYELASHES
     Dosage: I APPLICATION NIGHTLY (2 TIMES)
     Dates: start: 20091120, end: 20091122

REACTIONS (3)
  - EYE DISCHARGE [None]
  - EYE SWELLING [None]
  - OCULAR HYPERAEMIA [None]
